FAERS Safety Report 25476188 (Version 1)
Quarter: 2025Q2

REPORT INFORMATION
  Report Type: Spontaneous
  Country: US (occurrence: US)
  Receive Date: 20250625
  Receipt Date: 20250625
  Transmission Date: 20250717
  Serious: No
  Sender: Harrow Health
  Company Number: US-HARROW-HAR-2025-US-00097

PATIENT
  Sex: Female

DRUGS (6)
  1. VEVYE [Suspect]
     Active Substance: CYCLOSPORINE
     Route: 047
     Dates: start: 20250312, end: 20250330
  2. ATORVASTATIN [Concomitant]
     Active Substance: ATORVASTATIN
  3. Renue eyedrops [Concomitant]
  4. SENNA [Concomitant]
     Active Substance: SENNOSIDES
  5. Viviscal [Concomitant]
  6. LINZESS [Concomitant]
     Active Substance: LINACLOTIDE

REACTIONS (1)
  - Eye pain [Recovered/Resolved]
